FAERS Safety Report 20099637 (Version 2)
Quarter: 2022Q1

REPORT INFORMATION
  Report Type: Other
  Country: IT (occurrence: None)
  Receive Date: 20211123
  Receipt Date: 20220122
  Transmission Date: 20220424
  Serious: Yes (Other)
  Sender: FDA-Public Use
  Company Number: IT-ROCHE-2958876

PATIENT
  Age: 56 Year
  Sex: Male
  Weight: 69.1 kg

DRUGS (1)
  1. PRALSETINIB [Suspect]
     Active Substance: PRALSETINIB
     Indication: Medullary thyroid cancer
     Route: 048
     Dates: start: 20200505

REACTIONS (1)
  - Uveal melanoma [Recovering/Resolving]

NARRATIVE: CASE EVENT DATE: 20210315
